FAERS Safety Report 9784968 (Version 1)
Quarter: 2013Q4

REPORT INFORMATION
  Report Type: Other
  Country: US (occurrence: US)
  Receive Date: 20131227
  Receipt Date: 20131227
  Transmission Date: 20140711
  Serious: Yes (Hospitalization)
  Sender: FDA-Public Use
  Company Number: US-BRISTOL-MYERS SQUIBB COMPANY-19932029

PATIENT
  Age: 56 Year
  Sex: Female

DRUGS (9)
  1. WARFARIN SODIUM [Suspect]
     Dosage: INTRAGASTRIC ADMINISTRATION;?5MG DAILY FOR 3 DAYS, FOLLOWED BY 2.5MG DAILY
  2. BISMUTH SALICYLATE+METRONIDAZOLE+TETRACYCLINE HCL [Interacting]
     Indication: DIARRHOEA
  3. ENOXAPARIN SODIUM [Concomitant]
     Indication: DEEP VEIN THROMBOSIS
     Route: 058
  4. LOPERAMIDE [Concomitant]
     Indication: DIARRHOEA
  5. DIPHENOXYLATE HCL + ATROPINE SULFATE [Concomitant]
     Dosage: 1 DF= 5 MG/0.05
  6. MULTIVITAMIN [Concomitant]
  7. VITAMIN D [Concomitant]
     Dosage: 1 DF= 50,000  UNITS
  8. PREDNISONE [Concomitant]
  9. IPRATROPIUM + ALBUTEROL [Concomitant]
     Dosage: NEBULIZED

REACTIONS (3)
  - Coagulation time prolonged [Unknown]
  - Post procedural haemorrhage [Unknown]
  - Drug interaction [Unknown]
